FAERS Safety Report 25348115 (Version 1)
Quarter: 2025Q2

REPORT INFORMATION
  Report Type: Spontaneous
  Country: US (occurrence: US)
  Receive Date: 20250522
  Receipt Date: 20250522
  Transmission Date: 20250717
  Serious: Yes (Other)
  Sender: COOPERSURGICAL
  Company Number: US-COOPERSURGICAL, INC.-2025CPS003992

PATIENT
  Age: 24 Year
  Sex: Female
  Weight: 105.67 kg

DRUGS (2)
  1. PARAGARD T 380A [Suspect]
     Active Substance: COPPER
     Route: 015
     Dates: start: 20150827
  2. VALACYCLOVIR HYDROCHLORIDE [Concomitant]
     Active Substance: VALACYCLOVIR HYDROCHLORIDE
     Dates: start: 201101

REACTIONS (25)
  - Haemorrhagic ovarian cyst [Not Recovered/Not Resolved]
  - Ovarian cyst [Not Recovered/Not Resolved]
  - Device breakage [Unknown]
  - Foreign body in reproductive tract [Unknown]
  - Complication of device removal [Unknown]
  - Embedded device [Unknown]
  - Uterine perforation [Unknown]
  - Endometrial thickening [Recovered/Resolved]
  - Cervical cyst [Not Recovered/Not Resolved]
  - Weight increased [Recovered/Resolved]
  - Post-traumatic stress disorder [Unknown]
  - Adjustment disorder [Unknown]
  - Anxiety disorder [Unknown]
  - Perineal pain [Unknown]
  - Uterine spasm [Recovered/Resolved]
  - Weight bearing difficulty [Unknown]
  - Mobility decreased [Unknown]
  - Device dislocation [Unknown]
  - Major depression [Unknown]
  - Nausea [Unknown]
  - Abnormal uterine bleeding [Recovered/Resolved]
  - Intermenstrual bleeding [Recovered/Resolved]
  - Abdominal pain [Recovered/Resolved]
  - Pain [Unknown]
  - Pelvic pain [Unknown]

NARRATIVE: CASE EVENT DATE: 20180119
